FAERS Safety Report 7477540-4 (Version None)
Quarter: 2011Q2

REPORT INFORMATION
  Report Type: 
  Country: None (occurrence: None)
  Receive Date: 20110511
  Receipt Date: 20110511
  Transmission Date: 20111010
  Serious: Yes (Other)
  Sender: FDA-Public Use
  Company Number: None

PATIENT
  Age: 25 Year
  Sex: Female
  Weight: 58.9676 kg

DRUGS (1)
  1. DEXTROAMPHETAMINE SULFATE [Suspect]
     Indication: ATTENTION DEFICIT/HYPERACTIVITY DISORDER
     Dosage: 40 MG 2 AM, 1 NOON 1 4 PM PO
     Route: 048
     Dates: start: 20110502, end: 20110510

REACTIONS (2)
  - PRODUCT COUNTERFEIT [None]
  - COUNTERFEIT DRUG ADMINISTERED [None]
